FAERS Safety Report 6880680-1 (Version None)
Quarter: 2010Q3

REPORT INFORMATION
  Report Type: 
  Country: None (occurrence: None)
  Receive Date: 20100728
  Receipt Date: 20100720
  Transmission Date: 20110219
  Serious: Yes (Hospitalization, Other)
  Sender: FDA-Public Use
  Company Number: 2004BI001423

PATIENT
  Age: 56 Year
  Sex: Male

DRUGS (11)
  1. AVONEX [Suspect]
     Indication: MULTIPLE SCLEROSIS
     Route: 030
     Dates: start: 19960101
  2. AVONEX [Suspect]
     Route: 030
  3. ACCUPRIL [Concomitant]
     Indication: PRODUCT USED FOR UNKNOWN INDICATION
  4. COREG [Concomitant]
     Indication: PRODUCT USED FOR UNKNOWN INDICATION
  5. ASPIRIN [Concomitant]
     Indication: PRODUCT USED FOR UNKNOWN INDICATION
  6. PROVIGIL [Concomitant]
     Indication: PRODUCT USED FOR UNKNOWN INDICATION
  7. VITAMIN B-12 [Concomitant]
     Indication: PRODUCT USED FOR UNKNOWN INDICATION
  8. VIAGRA [Concomitant]
     Indication: PRODUCT USED FOR UNKNOWN INDICATION
  9. GARLIC [Concomitant]
     Indication: PRODUCT USED FOR UNKNOWN INDICATION
  10. BEE POLLEN [Concomitant]
     Indication: PRODUCT USED FOR UNKNOWN INDICATION
  11. WELLBUTRIN [Concomitant]
     Indication: PRODUCT USED FOR UNKNOWN INDICATION

REACTIONS (2)
  - BRADYCARDIA [None]
  - CARDIAC FAILURE [None]
